FAERS Safety Report 9876879 (Version 2)
Quarter: 2014Q1

REPORT INFORMATION
  Report Type: Other
  Country: US (occurrence: US)
  Receive Date: 20140206
  Receipt Date: 20140206
  Transmission Date: 20141002
  Serious: No
  Sender: FDA-Public Use
  Company Number: US-ACORDA-ACO_37985_2013

PATIENT
  Sex: Female

DRUGS (3)
  1. AMPYRA [Suspect]
     Indication: PRODUCT USED FOR UNKNOWN INDICATION
     Dosage: 10 MG, BID
     Route: 065
     Dates: start: 20120618
  2. AMPYRA [Suspect]
     Dosage: 10 MG, QD
     Route: 065
  3. AMPYRA [Suspect]
     Dosage: 10 MG, BID
     Route: 065

REACTIONS (6)
  - Abasia [Recovered/Resolved]
  - Gait disturbance [Recovered/Resolved]
  - Pain in extremity [Recovered/Resolved]
  - Walking aid user [Recovered/Resolved]
  - Back pain [Recovered/Resolved]
  - Inappropriate schedule of drug administration [Unknown]
